FAERS Safety Report 5770279-2 (Version None)
Quarter: 2008Q2

REPORT INFORMATION
  Report Type: 
  Country: None (occurrence: None)
  Receive Date: 20080613
  Receipt Date: 20080429
  Transmission Date: 20081010
  Serious: No
  Sender: FDA-Public Use
  Company Number: US-ABBOTT-08P-163-0449508-00

PATIENT
  Sex: Male

DRUGS (3)
  1. HUMIRA [Suspect]
     Indication: CROHN'S DISEASE
     Route: 058
     Dates: start: 20080429, end: 20080429
  2. HUMIRA [Suspect]
     Route: 058
     Dates: start: 20080513, end: 20080513
  3. HUMIRA [Suspect]
     Route: 058

REACTIONS (3)
  - BALANCE DISORDER [None]
  - HYPERHIDROSIS [None]
  - HYPOTENSION [None]
